FAERS Safety Report 18335838 (Version 2)
Quarter: 2020Q4

REPORT INFORMATION
  Report Type: Report from Study
  Country: BR (occurrence: BR)
  Receive Date: 20201001
  Receipt Date: 20201111
  Transmission Date: 20210113
  Serious: Yes (Other)
  Sender: FDA-Public Use
  Company Number: BR-UCBSA-2020038215

PATIENT
  Age: 57 Year
  Sex: Female
  Weight: 78 kg

DRUGS (6)
  1. DEXANEURIN [Concomitant]
     Active Substance: DEXAMETHASONE\LIDOCAINE\VITAMINS
     Indication: PAIN
     Dosage: UNK
  2. INFRALAX [Concomitant]
     Active Substance: ACETAMINOPHEN\CAFFEINE\CARISOPRODOL\DICLOFENAC SODIUM
     Indication: PAIN
     Dosage: UNK
  3. CERTOLIZUMAB PEGOL [Suspect]
     Active Substance: CERTOLIZUMAB PEGOL
     Indication: RHEUMATOID ARTHRITIS
     Dosage: 400 MILLIGRAM, MONTHLY (QM)
     Route: 058
     Dates: start: 2016
  4. LOSARTANA POTASSICA [Concomitant]
     Active Substance: LOSARTAN
     Indication: HYPERTENSION
     Dosage: 1 TABLET  ONCE DAILY (QD)
     Route: 048
  5. PREDNISONA [Concomitant]
     Active Substance: PREDNISONE
     Indication: PAIN
     Dosage: 1 DOSAGE FORM, ONCE DAILY (QD)
     Route: 048
  6. EXODUS [ESCITALOPRAM OXALATE] [Concomitant]
     Indication: PANIC DISORDER
     Dosage: UNK

REACTIONS (5)
  - Memory impairment [Unknown]
  - Product availability issue [Unknown]
  - Weight increased [Unknown]
  - Therapy interrupted [Unknown]
  - Rheumatoid arthritis [Not Recovered/Not Resolved]

NARRATIVE: CASE EVENT DATE: 201912
